FAERS Safety Report 23620698 (Version 2)
Quarter: 2024Q1

REPORT INFORMATION
  Report Type: Spontaneous
  Country: US (occurrence: US)
  Receive Date: 20240312
  Receipt Date: 20240314
  Transmission Date: 20240410
  Serious: No
  Sender: FDA-Public Use
  Company Number: US-LEO Pharma-368452

PATIENT
  Age: 74 Year
  Sex: Male

DRUGS (2)
  1. ADBRY [Suspect]
     Active Substance: TRALOKINUMAB-LDRM
     Indication: Eczema
     Dosage: HAS BEEN ON ADBRY FOR 3 MONTHS
  2. ADBRY [Suspect]
     Active Substance: TRALOKINUMAB-LDRM
     Indication: Dermatitis
     Dosage: HAS BEEN ON ADBRY FOR 3 MONTHS

REACTIONS (3)
  - Eczema [Unknown]
  - Drug ineffective [Unknown]
  - Rash [Unknown]
